APPROVED DRUG PRODUCT: TRIPROLIDINE HYDROCHLORIDE
Active Ingredient: TRIPROLIDINE HYDROCHLORIDE
Strength: 1.25MG/5ML
Dosage Form/Route: SYRUP;ORAL
Application: A085940 | Product #001
Applicant: ALPHARMA US PHARMACEUTICALS DIVISION
Approved: Approved Prior to Jan 1, 1982 | RLD: No | RS: No | Type: DISCN